FAERS Safety Report 7074865-1 (Version None)
Quarter: 2010Q4

REPORT INFORMATION
  Report Type: 
  Country: None (occurrence: None)
  Receive Date: 20101029
  Receipt Date: 20101019
  Transmission Date: 20110411
  Serious: Yes (Other)
  Sender: FDA-Public Use
  Company Number: PHEH2008US03404

PATIENT
  Sex: Female

DRUGS (7)
  1. ZOMETA [Suspect]
     Dosage: 4MG MONTHLY
     Dates: start: 20031201
  2. AROMASIN [Concomitant]
  3. XELODA [Concomitant]
  4. HYZAAR [Concomitant]
  5. CHEMOTHERAPEUTICS NOS [Concomitant]
  6. ARIMIDEX [Concomitant]
     Dosage: UNK
     Dates: start: 20031201
  7. ANTIOXIDANTS [Concomitant]

REACTIONS (36)
  - ACTINIC KERATOSIS [None]
  - ANXIETY [None]
  - BONE LESION [None]
  - CYST [None]
  - DEBRIDEMENT [None]
  - DIASTOLIC DYSFUNCTION [None]
  - EMOTIONAL DISTRESS [None]
  - EYE PAIN [None]
  - EYE PRURITUS [None]
  - FATIGUE [None]
  - GASTROOESOPHAGEAL REFLUX DISEASE [None]
  - INFECTION [None]
  - INJURY [None]
  - INTERVERTEBRAL DISC DEGENERATION [None]
  - INTERVERTEBRAL DISC PROTRUSION [None]
  - MELANOCYTIC NAEVUS [None]
  - METASTASES TO BONE [None]
  - MITRAL VALVE INCOMPETENCE [None]
  - NEOPLASM MALIGNANT [None]
  - OESOPHAGEAL MASS [None]
  - OESOPHAGITIS [None]
  - OSTEOARTHRITIS [None]
  - OSTEONECROSIS OF JAW [None]
  - OSTEOPENIA [None]
  - PAIN [None]
  - PAIN IN JAW [None]
  - PHYSICAL DISABILITY [None]
  - SCAR [None]
  - SCOLIOSIS [None]
  - SQUAMOUS CELL CARCINOMA [None]
  - SYNOVIAL CYST [None]
  - THYROID NEOPLASM [None]
  - TRICUSPID VALVE INCOMPETENCE [None]
  - ULCERATIVE KERATITIS [None]
  - UTERINE LEIOMYOMA [None]
  - VISION BLURRED [None]
